FAERS Safety Report 13300083 (Version 1)
Quarter: 2017Q1

REPORT INFORMATION
  Report Type: Spontaneous
  Country: AU (occurrence: AU)
  Receive Date: 20170306
  Receipt Date: 20170306
  Transmission Date: 20170428
  Serious: Yes (Hospitalization)
  Sender: FDA-Public Use
  Company Number: AU-ABBVIE-17P-008-1888283-00

PATIENT
  Sex: Male

DRUGS (5)
  1. CITALOPRAM [Suspect]
     Active Substance: CITALOPRAM HYDROBROMIDE
     Indication: PRODUCT USED FOR UNKNOWN INDICATION
     Route: 048
     Dates: end: 20170224
  2. NORVIR [Suspect]
     Active Substance: RITONAVIR
     Indication: HEPATITIS C
     Route: 048
  3. NORVIR [Suspect]
     Active Substance: RITONAVIR
     Route: 048
  4. AMITRIPTYLINE [Suspect]
     Active Substance: AMITRIPTYLINE
     Indication: PRODUCT USED FOR UNKNOWN INDICATION
     Route: 048
     Dates: start: 20150220, end: 20150224
  5. FENTANYL. [Suspect]
     Active Substance: FENTANYL
     Indication: PRODUCT USED FOR UNKNOWN INDICATION
     Dosage: TOPICAL
     Route: 062
     Dates: start: 20150220, end: 20150223

REACTIONS (4)
  - Confusional state [Recovering/Resolving]
  - Dysarthria [Recovering/Resolving]
  - Serotonin syndrome [Recovered/Resolved]
  - Myoclonus [Recovering/Resolving]
